FAERS Safety Report 8978113 (Version 1)
Quarter: 2012Q4

REPORT INFORMATION
  Report Type: 
  Country: IR (occurrence: IR)
  Receive Date: 20121220
  Receipt Date: 20121220
  Transmission Date: 20130627
  Serious: Yes (Death, Other)
  Sender: FDA-Public Use
  Company Number: PHHY2012IR117040

PATIENT
  Age: 26 Year
  Sex: Male

DRUGS (4)
  1. VANCOMYCIN [Suspect]
     Indication: RESPIRATORY DISTRESS
  2. CIPROFLOXACIN [Concomitant]
  3. METRONIDAZOLE [Concomitant]
  4. KETOCONAZOLE [Concomitant]

REACTIONS (2)
  - Respiratory distress [Fatal]
  - Drug resistance [Unknown]
